FAERS Safety Report 23324398 (Version 1)
Quarter: 2023Q4

REPORT INFORMATION
  Report Type: Spontaneous
  Country: CN (occurrence: CN)
  Receive Date: 20231221
  Receipt Date: 20231221
  Transmission Date: 20240110
  Serious: Yes (Disabling)
  Sender: FDA-Public Use
  Company Number: CN-ABBVIE-5551145

PATIENT
  Age: 64 Year
  Sex: Female
  Weight: 35 kg

DRUGS (3)
  1. VENETOCLAX [Suspect]
     Active Substance: VENETOCLAX
     Indication: Myelodysplastic syndrome
     Dosage: 400 MILLIGRAM
     Route: 048
     Dates: start: 20231121, end: 20231208
  2. STERILE WATER [Concomitant]
     Active Substance: WATER
     Indication: Spinal fracture
     Dosage: 4 MILLILITER
     Dates: start: 20231121, end: 20231127
  3. AZACITIDINE [Suspect]
     Active Substance: AZACITIDINE
     Indication: Myelodysplastic syndrome
     Dosage: 100 MILLIGRAM
     Route: 065
     Dates: start: 20231121, end: 20231127

REACTIONS (2)
  - White blood cell count decreased [Recovering/Resolving]
  - Neutrophil count decreased [Recovering/Resolving]

NARRATIVE: CASE EVENT DATE: 20231208
